FAERS Safety Report 9028973 (Version 1)
Quarter: 2013Q1

REPORT INFORMATION
  Report Type: Spontaneous
  Country: US (occurrence: CA)
  Receive Date: 20130123
  Receipt Date: 20130123
  Transmission Date: 20140127
  Serious: Yes (Other)
  Sender: FDA-Public Use
  Company Number: CA-MUTUAL PHARMACEUTICAL COMPANY, INC.-BCTM20130006

PATIENT
  Age: 36 Year
  Sex: Female

DRUGS (6)
  1. BACTRIM DS [Suspect]
     Indication: URINARY TRACT INFECTION
     Route: 065
     Dates: start: 20121211, end: 20121218
  2. COPAXONE [Suspect]
     Indication: MULTIPLE SCLEROSIS
     Dates: start: 20121220
  3. COPAXONE [Suspect]
     Dates: start: 20121130, end: 20121218
  4. BACLOFEN [Concomitant]
     Indication: PRODUCT USED FOR UNKNOWN INDICATION
     Route: 065
  5. CARBAMAZEPINE [Concomitant]
     Indication: PRODUCT USED FOR UNKNOWN INDICATION
     Route: 065
  6. BCP (BIRTH CONTROL PILLS) [Concomitant]
     Indication: PRODUCT USED FOR UNKNOWN INDICATION
     Route: 065

REACTIONS (4)
  - Swelling face [Recovered/Resolved]
  - Injection site swelling [Recovered/Resolved]
  - Injection site erythema [Recovered/Resolved]
  - Urticaria [Recovered/Resolved]
